FAERS Safety Report 12642025 (Version 2)
Quarter: 2016Q3

REPORT INFORMATION
  Report Type: Report from Study
  Country: FR (occurrence: FR)
  Receive Date: 20160810
  Receipt Date: 20160823
  Transmission Date: 20161109
  Serious: Yes (Life-Threatening, Hospitalization)
  Sender: FDA-Public Use
  Company Number: FR-JNJFOC-20160806236

PATIENT
  Sex: Female
  Weight: 52 kg

DRUGS (3)
  1. PARACETAMOL [Concomitant]
     Active Substance: ACETAMINOPHEN
     Indication: HEADACHE
     Route: 048
  2. SIMPONI [Suspect]
     Active Substance: GOLIMUMAB
     Indication: ANKYLOSING SPONDYLITIS
     Route: 058
     Dates: start: 20160226, end: 20160712
  3. ACUPAN [Concomitant]
     Active Substance: NEFOPAM HYDROCHLORIDE
     Indication: ANKYLOSING SPONDYLITIS
     Route: 048

REACTIONS (2)
  - Suicide attempt [Unknown]
  - Depression suicidal [Not Recovered/Not Resolved]

NARRATIVE: CASE EVENT DATE: 2016
